FAERS Safety Report 17395468 (Version 1)
Quarter: 2020Q1

REPORT INFORMATION
  Report Type: Spontaneous
  Country: SG (occurrence: SG)
  Receive Date: 20200210
  Receipt Date: 20200210
  Transmission Date: 20200409
  Serious: Yes (Other)
  Sender: FDA-Public Use
  Company Number: SG-JUBILANT PHARMA LTD-2020SG000032

PATIENT
  Age: 38 Year
  Sex: Female

DRUGS (3)
  1. LITHIUM. [Concomitant]
     Active Substance: LITHIUM
     Indication: THYROTOXIC CRISIS
     Dosage: UNK
  2. SODIUM IODIDE I-131. [Suspect]
     Active Substance: SODIUM IODIDE I-131
     Indication: BASEDOW^S DISEASE
     Dosage: 30 MCI, SINGLE DOSE
  3. CARBIMAZOLE [Concomitant]
     Active Substance: CARBIMAZOLE
     Indication: HYPERTHYROIDISM
     Dosage: 30 MG, ONCE PER DAY
     Dates: start: 2018

REACTIONS (2)
  - Post procedural hypothyroidism [Unknown]
  - Lymphadenitis bacterial [Recovered/Resolved]
